FAERS Safety Report 10765584 (Version 1)
Quarter: 2015Q1

REPORT INFORMATION
  Report Type: Report from Study
  Country: CN (occurrence: CN)
  Receive Date: 20150205
  Receipt Date: 20150205
  Transmission Date: 20150721
  Serious: Yes (Other)
  Sender: FDA-Public Use
  Company Number: CN-ASTRAZENECA-2015SE10205

PATIENT
  Sex: Male

DRUGS (2)
  1. ASPART [Concomitant]
     Dosage: 5/10 IU EVERY OTHER DAY
  2. BYETTA [Suspect]
     Active Substance: EXENATIDE
     Indication: TYPE 2 DIABETES MELLITUS
     Route: 058
     Dates: start: 20140610

REACTIONS (2)
  - Carbohydrate antigen 19-9 increased [Unknown]
  - Vomiting [Recovered/Resolved]
